FAERS Safety Report 11024763 (Version 4)
Quarter: 2015Q2

REPORT INFORMATION
  Report Type: Report from Study
  Country: US (occurrence: None)
  Receive Date: 20150410
  Receipt Date: 20150526
  Transmission Date: 20150821
  Serious: Yes (Other)
  Sender: FDA-Public Use
  Company Number: ADR-2015-00662

PATIENT
  Age: 52 Year
  Sex: Female

DRUGS (3)
  1. SUFENTA [Suspect]
     Active Substance: SUFENTANIL CITRATE
  2. BACLOFEN INTRATHECAL [Suspect]
     Active Substance: BACLOFEN
     Indication: POST LAMINECTOMY SYNDROME
  3. CLONIDINE. [Suspect]
     Active Substance: CLONIDINE
     Dates: end: 20141001

REACTIONS (6)
  - Implant site extravasation [None]
  - Purulence [None]
  - Implant site infection [None]
  - Implant site pain [None]
  - Device inversion [None]
  - Device connection issue [None]
